FAERS Safety Report 18754403 (Version 1)
Quarter: 2021Q1

REPORT INFORMATION
  Report Type: Spontaneous
  Country: CN (occurrence: CN)
  Receive Date: 20210119
  Receipt Date: 20210119
  Transmission Date: 20210419
  Serious: Yes (Hospitalization, Other)
  Sender: FDA-Public Use
  Company Number: CN-BEIGENE USA INC-BGN-2021-000081

PATIENT

DRUGS (1)
  1. BRUKINSA [Suspect]
     Active Substance: ZANUBRUTINIB
     Indication: CHRONIC LYMPHOCYTIC LEUKAEMIA
     Dosage: 160 MILLIGRAM, BID
     Route: 048
     Dates: start: 20200824, end: 202012

REACTIONS (4)
  - Electrolyte imbalance [Unknown]
  - Hepatitis B reactivation [Unknown]
  - Hepatic failure [Unknown]
  - Cholecystitis [Unknown]

NARRATIVE: CASE EVENT DATE: 202012
